FAERS Safety Report 10844361 (Version 3)
Quarter: 2015Q3

REPORT INFORMATION
  Report Type: Report from Study
  Country: AU (occurrence: AU)
  Receive Date: 20150220
  Receipt Date: 20150901
  Transmission Date: 20151125
  Serious: Yes (Hospitalization)
  Sender: FDA-Public Use
  Company Number: AU-CELGENE-AUS-2015012196

PATIENT
  Age: 57 Year
  Sex: Female

DRUGS (12)
  1. CRESTOR [Concomitant]
     Active Substance: ROSUVASTATIN CALCIUM
     Indication: HYPERCHOLESTEROLAEMIA
     Route: 065
     Dates: start: 20090323
  2. LOPERAMIDE [Concomitant]
     Active Substance: LOPERAMIDE
     Indication: DIARRHOEA
     Dosage: 2-4MG
     Route: 048
     Dates: start: 20140918
  3. PARACETAMOL [Concomitant]
     Active Substance: ACETAMINOPHEN
     Indication: HEADACHE
     Route: 048
     Dates: start: 20140919
  4. NACL [Concomitant]
     Active Substance: SODIUM CHLORIDE
     Indication: CHEMOTHERAPY TOXICITY ATTENUATION
     Route: 065
     Dates: start: 20140918
  5. ABRAXANE [Suspect]
     Active Substance: PACLITAXEL
     Indication: BREAST CANCER
     Route: 050
     Dates: start: 20141211, end: 20141218
  6. DOCUSATE WITH SENNA [Concomitant]
     Indication: CONSTIPATION
     Route: 065
     Dates: start: 20140918
  7. ALTEPLASE [Concomitant]
     Active Substance: ALTEPLASE
     Indication: DEVICE OCCLUSION
     Route: 048
     Dates: start: 20141211, end: 20141211
  8. STEMETIL [Concomitant]
     Active Substance: PROCHLORPERAZINE MALEATE
     Indication: LABYRINTHITIS
     Route: 065
     Dates: start: 20090323
  9. DEXAMETHASONE. [Concomitant]
     Active Substance: DEXAMETHASONE
     Indication: ANTIEMETIC SUPPORTIVE CARE
     Route: 041
     Dates: start: 20140918
  10. OLMETEC [Concomitant]
     Active Substance: OLMESARTAN MEDOXOMIL
     Indication: HYPERTENSION
     Dosage: 40/12.5 MG
     Route: 065
     Dates: start: 20031017
  11. METOCLOPRAMIDE. [Concomitant]
     Active Substance: METOCLOPRAMIDE
     Indication: ANTIEMETIC SUPPORTIVE CARE
     Dosage: 10-20MG
     Route: 048
     Dates: start: 20140918
  12. ZANTAC [Concomitant]
     Active Substance: RANITIDINE HYDROCHLORIDE
     Indication: GASTROOESOPHAGEAL REFLUX DISEASE
     Route: 048
     Dates: start: 20140928, end: 20141224

REACTIONS (2)
  - Neutropenia [Recovered/Resolved]
  - Gastrooesophageal reflux disease [Recovered/Resolved]

NARRATIVE: CASE EVENT DATE: 20141223
